FAERS Safety Report 13644335 (Version 1)
Quarter: 2017Q2

REPORT INFORMATION
  Report Type: Spontaneous
  Country: US (occurrence: US)
  Receive Date: 20170612
  Receipt Date: 20170612
  Transmission Date: 20170830
  Serious: No
  Sender: FDA-Public Use
  Company Number: US-ROCHE-1292313

PATIENT
  Age: 75 Year
  Sex: Male

DRUGS (3)
  1. XELODA [Suspect]
     Active Substance: CAPECITABINE
     Dosage: 3 TABS
     Route: 048
     Dates: end: 20131019
  2. XELODA [Suspect]
     Active Substance: CAPECITABINE
     Dosage: 3 TABLETS
     Route: 048
  3. XELODA [Suspect]
     Active Substance: CAPECITABINE
     Indication: LARGE INTESTINE POLYP
     Dosage: 2000MG 4 500MG TABLETS 2 TIMES A DAY
     Route: 048
     Dates: start: 20130928

REACTIONS (7)
  - Skin exfoliation [Recovered/Resolved]
  - Rash [Recovering/Resolving]
  - Tenderness [Unknown]
  - Pain in extremity [Unknown]
  - Nail disorder [Recovered/Resolved]
  - Pruritus [Recovered/Resolved]
  - Pruritus [Recovering/Resolving]

NARRATIVE: CASE EVENT DATE: 201310
